FAERS Safety Report 6711322-3 (Version None)
Quarter: 2010Q2

REPORT INFORMATION
  Report Type: 
  Country: None (occurrence: None)
  Receive Date: 20100505
  Receipt Date: 20100215
  Transmission Date: 20101027
  Serious: Yes (Other)
  Sender: FDA-Public Use
  Company Number: US-SANOFI-AVENTIS-2010SA025427

PATIENT
  Sex: Male

DRUGS (3)
  1. FEXOFENADINE HYDROCHLORIDE/PSEUDOEPHEDRINE HYDROCHLORIDE [Suspect]
     Dosage: 60 MG/120 MG BID
     Route: 048
     Dates: start: 20100101
  2. ATENOLOL [Concomitant]
  3. CLOPIDOGREL [Concomitant]

REACTIONS (3)
  - MICTURITION DISORDER [None]
  - PENILE PAIN [None]
  - URINARY TRACT OBSTRUCTION [None]
